FAERS Safety Report 5207216-5 (Version None)
Quarter: 2007Q1

REPORT INFORMATION
  Report Type: 
  Country: None (occurrence: None)
  Receive Date: 20070112
  Receipt Date: 20070108
  Transmission Date: 20070707
  Serious: Yes (Hospitalization)
  Sender: FDA-Public Use
  Company Number: FR-GLAXOSMITHKLINE-B0453703A

PATIENT
  Age: 86 Year
  Sex: Female

DRUGS (5)
  1. AUGMENTIN '125' [Suspect]
     Indication: PYREXIA
     Dosage: 3G PER DAY
     Route: 048
     Dates: start: 20051225
  2. TAVANIC [Suspect]
     Indication: PYREXIA
     Dosage: 500MG PER DAY
     Route: 048
     Dates: start: 20051230
  3. CHRONADALATE [Concomitant]
     Dosage: 1UNIT PER DAY
     Route: 048
  4. ALDALIX [Concomitant]
     Dosage: 50MG PER DAY
     Route: 048
  5. PRAVASTATIN [Concomitant]
     Dosage: 20MG PER DAY
     Route: 048

REACTIONS (4)
  - COLITIS [None]
  - DIARRHOEA [None]
  - FALL [None]
  - PYREXIA [None]
